FAERS Safety Report 10244873 (Version 1)
Quarter: 2014Q2

REPORT INFORMATION
  Report Type: Spontaneous
  Country: US (occurrence: US)
  Receive Date: 20140618
  Receipt Date: 20140618
  Transmission Date: 20141212
  Serious: No
  Sender: FDA-Public Use
  Company Number: US-GALDERMA-US14001566

PATIENT
  Age: 80 Year
  Sex: Female

DRUGS (15)
  1. MIRVASO (BRIMONIDINE) TOPICAL GEL, 0.33% [Suspect]
     Indication: ROSACEA
     Dosage: 0.33%
     Route: 061
     Dates: start: 20140319, end: 20140501
  2. HUMULIN N [Concomitant]
     Indication: DIABETES MELLITUS
     Dosage: 14 UNITS
     Route: 058
     Dates: start: 2014
  3. CO Q10 [Concomitant]
     Dosage: 100 MG
     Route: 048
     Dates: start: 2004
  4. CRESTOR [Concomitant]
     Dosage: 5 MG
     Route: 048
  5. HUMALOG [Concomitant]
     Indication: DIABETES MELLITUS
     Dosage: 26 UNITS
     Route: 058
     Dates: start: 2014
  6. SYNTHROID [Concomitant]
     Indication: HYPOTHYROIDISM
     Dosage: 100 MCG
     Route: 048
     Dates: start: 1980
  7. TEKTURNA [Concomitant]
     Indication: HYPERTENSION
     Dosage: 300 MG
     Route: 048
     Dates: start: 2000
  8. VITAMIN D [Concomitant]
     Indication: VITAMIN D DECREASED
     Dosage: 1000 UNITS
     Route: 048
     Dates: start: 2010
  9. ASPIRIN [Concomitant]
     Indication: PROPHYLAXIS
     Dosage: 81 MG
     Route: 048
     Dates: start: 2000
  10. BIOTIN [Concomitant]
     Indication: SUPPLEMENTATION THERAPY
     Dosage: 5 MCG
     Route: 048
     Dates: start: 2009
  11. PREVACID [Concomitant]
     Indication: GASTROOESOPHAGEAL REFLUX DISEASE
     Dosage: 15 MG
     Route: 048
     Dates: start: 2011
  12. HYOSCYAMINE [Concomitant]
     Indication: IRRITABLE BOWEL SYNDROME
     Dosage: 0.125 MG
     Route: 048
     Dates: start: 1992
  13. ELIZABETH ARDEN FLAWLESS FINISH MOUSSE MAKEUP [Concomitant]
     Route: 061
     Dates: start: 1998
  14. OLAY WET CLEANSING TOWELETTES SENSITIVE [Concomitant]
     Route: 061
     Dates: start: 2014
  15. NEOVA HERBAL WASH [Concomitant]
     Route: 061
     Dates: start: 2014

REACTIONS (5)
  - Condition aggravated [Recovered/Resolved]
  - Rash [Recovered/Resolved]
  - Skin irritation [Recovered/Resolved]
  - Erythema [Recovered/Resolved]
  - Skin burning sensation [Recovered/Resolved]
